FAERS Safety Report 24150957 (Version 1)
Quarter: 2024Q3

REPORT INFORMATION
  Report Type: Spontaneous
  Country: US (occurrence: None)
  Receive Date: 20240730
  Receipt Date: 20240730
  Transmission Date: 20241017
  Serious: Yes (Other)
  Sender: ASTRAZENECA
  Company Number: 2024A166587

PATIENT
  Sex: Female

DRUGS (1)
  1. FASENRA [Suspect]
     Active Substance: BENRALIZUMAB
     Route: 058
     Dates: start: 20240701

REACTIONS (7)
  - Pneumonia streptococcal [Unknown]
  - Vaginal haemorrhage [Recovered/Resolved]
  - Uterine haemorrhage [Unknown]
  - Hepatic enzyme increased [Unknown]
  - Asthma [Unknown]
  - Headache [Unknown]
  - Drug ineffective [Unknown]
